FAERS Safety Report 4437702-7 (Version None)
Quarter: 2004Q3

REPORT INFORMATION
  Report Type: 
  Country: None (occurrence: None)
  Receive Date: 20040831
  Receipt Date: 20031205
  Transmission Date: 20050211
  Serious: No
  Sender: FDA-Public Use
  Company Number: US-GLAXOSMITHKLINE-A0442192A

PATIENT
  Sex: Female

DRUGS (2)
  1. ACYCLOVIR [Suspect]
     Indication: ILL-DEFINED DISORDER
     Dosage: 400MG TWICE PER DAY
     Route: 048
  2. NONE [Concomitant]

REACTIONS (1)
  - ASTHENIA [None]
